FAERS Safety Report 5384104-5 (Version None)
Quarter: 2007Q3

REPORT INFORMATION
  Report Type: 
  Country: None (occurrence: None)
  Receive Date: 20070711
  Receipt Date: 20070709
  Transmission Date: 20080115
  Serious: Yes (Hospitalization, Other)
  Sender: FDA-Public Use
  Company Number: US-MERCK-0704USA00714

PATIENT
  Age: 67 Year
  Sex: Female
  Weight: 64 kg

DRUGS (14)
  1. DECADRON [Suspect]
     Indication: WALDENSTROM'S MACROGLOBULINAEMIA
     Route: 048
     Dates: start: 20061127, end: 20061218
  2. DECADRON [Suspect]
     Indication: MULTIPLE MYELOMA
     Route: 048
     Dates: start: 20061127, end: 20061218
  3. REVLIMID [Suspect]
     Indication: WALDENSTROM'S MACROGLOBULINAEMIA
     Route: 048
     Dates: start: 20061127, end: 20061218
  4. REVLIMID [Suspect]
     Indication: MULTIPLE MYELOMA
     Route: 048
     Dates: start: 20061127, end: 20061218
  5. VALTREX [Concomitant]
     Indication: PROPHYLAXIS
     Route: 048
     Dates: start: 20061121, end: 20061218
  6. DAPSONE [Concomitant]
     Indication: PROPHYLAXIS
     Route: 048
     Dates: start: 20061128, end: 20061218
  7. NEXIUM [Concomitant]
     Indication: GASTROOESOPHAGEAL REFLUX DISEASE
     Route: 048
     Dates: start: 20050829
  8. FOSAMAX [Concomitant]
     Indication: BONE DISORDER
     Route: 048
     Dates: start: 20020101
  9. ASPIRIN [Concomitant]
     Indication: ANTICOAGULANT THERAPY
     Route: 065
  10. DETROL LA [Concomitant]
     Indication: INCONTINENCE
     Route: 048
     Dates: start: 20020101
  11. DETROL LA [Concomitant]
     Indication: HYPERTENSION
     Route: 048
     Dates: start: 20020101
  12. DOCUSATE SODIUM [Concomitant]
     Indication: CONSTIPATION
     Route: 065
     Dates: start: 20020101
  13. ULTRAM [Concomitant]
     Indication: PAIN
     Route: 048
     Dates: start: 20020402
  14. AMBIEN [Concomitant]
     Indication: INSOMNIA
     Route: 065
     Dates: start: 20030917

REACTIONS (11)
  - ANOREXIA [None]
  - DEHYDRATION [None]
  - DISORIENTATION [None]
  - FATIGUE [None]
  - HYPERBILIRUBINAEMIA [None]
  - HYPOTENSION [None]
  - JAUNDICE [None]
  - LIVER FUNCTION TEST ABNORMAL [None]
  - MALNUTRITION [None]
  - URINARY TRACT INFECTION [None]
  - WEIGHT DECREASED [None]
